FAERS Safety Report 6415967-X (Version None)
Quarter: 2009Q4

REPORT INFORMATION
  Report Type: 
  Country: None (occurrence: None)
  Receive Date: 20091027
  Receipt Date: 20091019
  Transmission Date: 20100525
  Serious: Yes (Other)
  Sender: FDA-Public Use
  Company Number: B0599811A

PATIENT
  Sex: Female

DRUGS (1)
  1. ROPINIROLE [Suspect]
     Indication: PARKINSON'S DISEASE
     Route: 065

REACTIONS (6)
  - COMPULSIONS [None]
  - COMPULSIVE SHOPPING [None]
  - LIBIDO INCREASED [None]
  - MENTAL DISORDER [None]
  - PATHOLOGICAL GAMBLING [None]
  - SUICIDAL IDEATION [None]
